FAERS Safety Report 4343112-3 (Version None)
Quarter: 2004Q2

REPORT INFORMATION
  Report Type: 
  Country: None (occurrence: None)
  Receive Date: 20040421
  Receipt Date: 20040416
  Transmission Date: 20050107
  Serious: Yes (Other)
  Sender: FDA-Public Use
  Company Number: US-GLAXOSMITHKLINE-A0507460A

PATIENT
  Age: 58 Year
  Sex: Female

DRUGS (2)
  1. AUGMENTIN [Suspect]
     Indication: INFLUENZA
     Dosage: 500MG TWICE PER DAY
     Route: 048
     Dates: start: 20030901, end: 20040201
  2. AUGMENTIN XR [Suspect]
     Indication: ILL-DEFINED DISORDER

REACTIONS (8)
  - DYSPNOEA [None]
  - ERYTHEMA [None]
  - LOSS OF CONSCIOUSNESS [None]
  - OEDEMA PERIPHERAL [None]
  - OROPHARYNGEAL SWELLING [None]
  - PYREXIA [None]
  - SWELLING FACE [None]
  - TREMOR [None]
